FAERS Safety Report 18847286 (Version 1)
Quarter: 2021Q1

REPORT INFORMATION
  Report Type: Report from Study
  Country: US (occurrence: US)
  Receive Date: 20210204
  Receipt Date: 20210204
  Transmission Date: 20210419
  Serious: Yes (Hospitalization, Other)
  Sender: FDA-Public Use
  Company Number: US-SHIRE-US202010683

PATIENT
  Age: 67 Year
  Sex: Female

DRUGS (12)
  1. TEDUGLUTIDE [Suspect]
     Active Substance: TEDUGLUTIDE
     Indication: SHORT-BOWEL SYNDROME
     Dosage: 3.8 MILLIGRAM, QOD
     Route: 058
     Dates: start: 20190408
  2. TEDUGLUTIDE [Suspect]
     Active Substance: TEDUGLUTIDE
     Dosage: 0.3800 UNIT UNKNOWN, PRN
     Route: 058
     Dates: start: 20190408
  3. TEDUGLUTIDE [Suspect]
     Active Substance: TEDUGLUTIDE
     Indication: SHORT-BOWEL SYNDROME
     Dosage: 3.8 MILLIGRAM, QOD
     Route: 058
     Dates: start: 20190408
  4. TEDUGLUTIDE [Suspect]
     Active Substance: TEDUGLUTIDE
     Indication: SHORT-BOWEL SYNDROME
     Dosage: 3.8 MILLIGRAM, QOD
     Route: 058
     Dates: start: 20190408
  5. TEDUGLUTIDE [Suspect]
     Active Substance: TEDUGLUTIDE
     Dosage: 0.3800 UNK, QD
     Route: 050
     Dates: start: 20190408
  6. TEDUGLUTIDE [Suspect]
     Active Substance: TEDUGLUTIDE
     Dosage: 0.3800 UNK, QD
     Route: 050
     Dates: start: 20190408
  7. TEDUGLUTIDE [Suspect]
     Active Substance: TEDUGLUTIDE
     Dosage: 0.3800 UNIT UNKNOWN, PRN
     Route: 058
     Dates: start: 20190408
  8. TEDUGLUTIDE [Suspect]
     Active Substance: TEDUGLUTIDE
     Dosage: 0.3800 UNIT UNKNOWN, PRN
     Route: 058
     Dates: start: 20190408
  9. TEDUGLUTIDE [Suspect]
     Active Substance: TEDUGLUTIDE
     Dosage: 0.3800 UNK, QD
     Route: 050
     Dates: start: 20190408
  10. TEDUGLUTIDE [Suspect]
     Active Substance: TEDUGLUTIDE
     Indication: SHORT-BOWEL SYNDROME
     Dosage: 3.8 MILLIGRAM, QOD
     Route: 058
     Dates: start: 20190408
  11. TEDUGLUTIDE [Suspect]
     Active Substance: TEDUGLUTIDE
     Dosage: 0.3800 UNIT UNKNOWN, PRN
     Route: 058
     Dates: start: 20190408
  12. TEDUGLUTIDE [Suspect]
     Active Substance: TEDUGLUTIDE
     Dosage: 0.3800 UNK, QD
     Route: 050
     Dates: start: 20190408

REACTIONS (6)
  - Lower limb fracture [Recovering/Resolving]
  - Fall [Unknown]
  - Gastric polyps [Not Recovered/Not Resolved]
  - Cellulitis [Unknown]
  - Therapy cessation [Not Recovered/Not Resolved]
  - Joint injury [Unknown]

NARRATIVE: CASE EVENT DATE: 20200311
